FAERS Safety Report 7759350-3 (Version None)
Quarter: 2011Q3

REPORT INFORMATION
  Report Type: 
  Country: None (occurrence: None)
  Receive Date: 20110919
  Receipt Date: 20110909
  Transmission Date: 20111222
  Serious: Yes (Other)
  Sender: FDA-Public Use
  Company Number: US-JNJFOC-20110905679

PATIENT
  Sex: Female
  Weight: 78.02 kg

DRUGS (9)
  1. DURAGESIC-100 [Suspect]
     Indication: NECK PAIN
     Route: 062
     Dates: start: 20000101
  2. DURAGESIC-100 [Suspect]
     Route: 062
     Dates: start: 20090101
  3. DURAGESIC-100 [Suspect]
     Indication: BACK PAIN
     Route: 062
     Dates: start: 20000101
  4. DURAGESIC-100 [Suspect]
     Route: 062
     Dates: start: 20090101
  5. DURAGESIC-100 [Suspect]
     Route: 062
  6. DURAGESIC-100 [Suspect]
     Route: 062
  7. DURAGESIC-100 [Suspect]
     Route: 062
  8. DURAGESIC-100 [Suspect]
     Route: 062
     Dates: start: 20090101
  9. DURAGESIC-100 [Suspect]
     Indication: PELVIC PAIN
     Route: 062
     Dates: start: 20000101

REACTIONS (6)
  - PAIN [None]
  - ADVERSE EVENT [None]
  - FEELING ABNORMAL [None]
  - MALAISE [None]
  - INADEQUATE ANALGESIA [None]
  - SURGERY [None]
